FAERS Safety Report 17988997 (Version 1)
Quarter: 2020Q3

REPORT INFORMATION
  Report Type: Spontaneous
  Country: CA (occurrence: CA)
  Receive Date: 20200707
  Receipt Date: 20200707
  Transmission Date: 20201103
  Serious: Yes (Hospitalization, Other)
  Sender: FDA-Public Use
  Company Number: CA-TEVA-2020-CA-1797294

PATIENT
  Sex: Female

DRUGS (1)
  1. VENLAFAXINE ACT [Suspect]
     Active Substance: VENLAFAXINE HYDROCHLORIDE
     Route: 065

REACTIONS (3)
  - Product substitution issue [Unknown]
  - Suicide attempt [Unknown]
  - Intentional self-injury [Unknown]
